FAERS Safety Report 8309127-5 (Version None)
Quarter: 2012Q2

REPORT INFORMATION
  Report Type: 
  Country: None (occurrence: None)
  Receive Date: 20120424
  Receipt Date: 20120416
  Transmission Date: 20120825
  Serious: Yes (Other)
  Sender: FDA-Public Use
  Company Number: PHHY2012IN034100

PATIENT
  Age: 35 Year
  Sex: Female

DRUGS (5)
  1. CLOZAPINE [Interacting]
     Dosage: 25 MG/ DAY
  2. CLOZAPINE [Interacting]
     Dosage: 400 MG/DAY
  3. VALPROATE SODIUM [Interacting]
     Dosage: 1000 MG/ DAY
  4. RISPERIDONE [Suspect]
     Dosage: 4 MG / DAY
  5. CLOZAPINE [Interacting]
     Dosage: 200 MG / DAY

REACTIONS (3)
  - DRUG INTERACTION [None]
  - ASTERIXIS [None]
  - PSYCHOTIC DISORDER [None]
